FAERS Safety Report 7010584-5 (Version None)
Quarter: 2010Q3

REPORT INFORMATION
  Report Type: 
  Country: None (occurrence: None)
  Receive Date: 20100923
  Receipt Date: 20100916
  Transmission Date: 20110219
  Serious: Yes (Hospitalization, Other)
  Sender: FDA-Public Use
  Company Number: US-AMGEN-KDL438975

PATIENT
  Sex: Male

DRUGS (3)
  1. ENBREL [Suspect]
     Indication: PSORIATIC ARTHROPATHY
     Route: 058
     Dates: start: 20040101
  2. SIMPONI [Concomitant]
  3. HUMIRA [Concomitant]

REACTIONS (6)
  - CHILLS [None]
  - DEHYDRATION [None]
  - FOOD POISONING [None]
  - HEPATIC STEATOSIS [None]
  - RENAL FAILURE [None]
  - THERAPEUTIC RESPONSE DECREASED [None]
